FAERS Safety Report 6094909-3 (Version None)
Quarter: 2009Q1

REPORT INFORMATION
  Report Type: 
  Country: None (occurrence: None)
  Receive Date: 20090227
  Receipt Date: 20090220
  Transmission Date: 20090719
  Serious: Yes (Other)
  Sender: FDA-Public Use
  Company Number: IE-BRISTOL-MYERS SQUIBB COMPANY-14517700

PATIENT

DRUGS (1)
  1. ADCORTYL TAB [Suspect]
     Dosage: 1 DF = 10 MG/ML. ADMINISTERED 1000S
     Route: 008
     Dates: start: 20000601

REACTIONS (1)
  - INCONTINENCE [None]
